FAERS Safety Report 4554166-3 (Version None)
Quarter: 2005Q1

REPORT INFORMATION
  Report Type: 
  Country: None (occurrence: None)
  Receive Date: 20050113
  Receipt Date: 20050113
  Transmission Date: 20050727
  Serious: Yes (Hospitalization)
  Sender: FDA-Public Use
  Company Number: None

PATIENT
  Age: 40 Year
  Sex: Female
  Weight: 111.5849 kg

DRUGS (5)
  1. KALETRA [Suspect]
     Indication: HIV INFECTION
     Dosage: 3 TABS, BID, ORAL
     Route: 048
     Dates: start: 20040924, end: 20041210
  2. TRUVADA [Suspect]
     Indication: HIV INFECTION
     Dosage: 1 TAB, QD, ORAL
     Route: 048
     Dates: start: 20040924, end: 20041210
  3. BUPROPION HCL [Concomitant]
  4. NIFEDIPINE [Concomitant]
  5. AMBIEN [Concomitant]

REACTIONS (7)
  - ASTHENIA [None]
  - FATIGUE [None]
  - HYPOAESTHESIA [None]
  - HYPOCALCAEMIA [None]
  - HYPOMAGNESAEMIA [None]
  - PARAESTHESIA [None]
  - VISION BLURRED [None]
